FAERS Safety Report 8266916-3 (Version None)
Quarter: 2012Q2

REPORT INFORMATION
  Report Type: 
  Country: None (occurrence: None)
  Receive Date: 20120409
  Receipt Date: 20120404
  Transmission Date: 20120825
  Serious: Yes (Life-Threatening, Hospitalization)
  Sender: FDA-Public Use
  Company Number: GB-ACCORD-012971

PATIENT
  Age: 79 Year
  Weight: 80 kg

DRUGS (5)
  1. FINASTERIDE [Suspect]
     Route: 048
     Dates: start: 20101101, end: 20110201
  2. XIPAMIDE [Concomitant]
     Route: 048
  3. MARCUMAR [Concomitant]
     Indication: PULMONARY EMBOLISM
     Route: 048
     Dates: start: 20070101
  4. LISIDOC [Concomitant]
     Route: 048
  5. TERAZOSIN HCL [Concomitant]
     Route: 048

REACTIONS (2)
  - HAEMORRHAGIC DIATHESIS [None]
  - THROMBOCYTOPENIA [None]
